FAERS Safety Report 6604664-3 (Version None)
Quarter: 2010Q1

REPORT INFORMATION
  Report Type: 
  Country: None (occurrence: None)
  Receive Date: 20100226
  Receipt Date: 20100210
  Transmission Date: 20100710
  Serious: Yes (Other)
  Sender: FDA-Public Use
  Company Number: US-ROCHE-680656

PATIENT
  Sex: Male

DRUGS (3)
  1. PEGASYS [Suspect]
     Indication: HEPATITIS C
     Route: 065
     Dates: start: 20091201
  2. COPEGUS [Suspect]
     Indication: HEPATITIS C
     Dosage: 1 TABLET IN AM AND 1 TABLET IN PM
     Route: 065
     Dates: start: 20091201
  3. XANAX [Concomitant]
     Dates: start: 20070101

REACTIONS (11)
  - ABDOMINAL DISTENSION [None]
  - APPENDICECTOMY [None]
  - ASTHENIA [None]
  - DYSKINESIA [None]
  - HEADACHE [None]
  - HYPERHIDROSIS [None]
  - MEMORY IMPAIRMENT [None]
  - MUSCLE TWITCHING [None]
  - ORAL INFECTION [None]
  - TINNITUS [None]
  - VISION BLURRED [None]
